FAERS Safety Report 25237821 (Version 1)
Quarter: 2025Q2

REPORT INFORMATION
  Report Type: Report from Study
  Country: US (occurrence: US)
  Receive Date: 20250425
  Receipt Date: 20250425
  Transmission Date: 20250717
  Serious: Yes (Other)
  Sender: INSMED
  Company Number: US-INSMED, INC.-2025-01204-US

PATIENT
  Sex: Female

DRUGS (2)
  1. ARIKAYCE [Suspect]
     Active Substance: AMIKACIN
     Indication: Mycobacterium avium complex infection
     Dosage: 590 MILLIGRAM, QD
     Route: 055
     Dates: start: 20250326, end: 20250326
  2. ARIKAYCE [Suspect]
     Active Substance: AMIKACIN
     Route: 055
     Dates: start: 2025, end: 2025

REACTIONS (6)
  - Obstructive airways disorder [Recovering/Resolving]
  - Lung disorder [Unknown]
  - Emotional distress [Recovering/Resolving]
  - Sleep disorder [Recovering/Resolving]
  - Dyspnoea [Unknown]
  - Drug hypersensitivity [Recovering/Resolving]

NARRATIVE: CASE EVENT DATE: 20250101
